FAERS Safety Report 8825190 (Version 3)
Quarter: 2012Q4

REPORT INFORMATION
  Report Type: Report from Study
  Country: ZA (occurrence: ZA)
  Receive Date: 20121004
  Receipt Date: 20121101
  Transmission Date: 20130627
  Serious: Yes (Life-Threatening, Congenital Anomaly, Other)
  Sender: FDA-Public Use
  Company Number: ZA-VIIV HEALTHCARE LIMITED-B0835121A

PATIENT
  Age: 27 Year
  Sex: Female
  Weight: 74.8 kg

DRUGS (5)
  1. LAMIVUDINE + ZIDOVUDINE [Suspect]
     Indication: HIV INFECTION
     Dosage: 450MG Twice per day
     Route: 048
     Dates: start: 20120723
  2. LOPINAVIR + RITONAVIR [Suspect]
     Indication: HIV INFECTION
     Dosage: 500MG Twice per day
     Route: 048
     Dates: start: 20120723
  3. PREGAMAL [Concomitant]
  4. PYRIDOXINE [Concomitant]
  5. ISONIAZID [Concomitant]

REACTIONS (1)
  - Foetal death [Recovered/Resolved]
